FAERS Safety Report 9075132 (Version 1)
Quarter: 2013Q1

REPORT INFORMATION
  Report Type: Report from Study
  Country: US (occurrence: US)
  Receive Date: 20130131
  Receipt Date: 20130131
  Transmission Date: 20140127
  Serious: No
  Sender: FDA-Public Use
  Company Number: US-ABBOTT-12P-163-1006632-00

PATIENT
  Age: 55 Year
  Sex: Male
  Weight: 61.29 kg

DRUGS (5)
  1. HUMIRA [Suspect]
     Indication: CROHN^S DISEASE
     Dates: start: 20121024, end: 20121024
  2. HUMIRA [Suspect]
     Dates: start: 20121107, end: 20121107
  3. TYLENOL [Concomitant]
     Indication: PRODUCT USED FOR UNKNOWN INDICATION
  4. MVI [Concomitant]
     Indication: PRODUCT USED FOR UNKNOWN INDICATION
  5. FE [Concomitant]
     Indication: PRODUCT USED FOR UNKNOWN INDICATION

REACTIONS (3)
  - Sensory disturbance [Not Recovered/Not Resolved]
  - Anxiety [Not Recovered/Not Resolved]
  - Caffeine consumption [Not Recovered/Not Resolved]
